FAERS Safety Report 10085956 (Version 2)
Quarter: 2014Q2

REPORT INFORMATION
  Report Type: Spontaneous
  Country: US (occurrence: US)
  Receive Date: 20140418
  Receipt Date: 20140619
  Transmission Date: 20141212
  Serious: No
  Sender: FDA-Public Use
  Company Number: US-B.I. PHARMACEUTICALS,INC./RIDGEFIELD-2014-BI-17134BP

PATIENT
  Age: 60 Year
  Sex: Male
  Weight: 91 kg

DRUGS (14)
  1. COMBIVENT [Suspect]
     Indication: CHRONIC OBSTRUCTIVE PULMONARY DISEASE
     Dosage: STRENGTH: 20 MCG/100 MCG; DAILY DOSE: 80 MCG/400 MCG
     Route: 055
     Dates: start: 20140414
  2. ACYCLOVIR [Concomitant]
     Dosage: 3200 MG
     Route: 048
  3. DARUNAVIR ETHANOLATE [Concomitant]
     Dosage: 1200 MG
     Route: 048
     Dates: start: 20140515
  4. DIPHENOXYLATE-ATROPINE [Concomitant]
     Dosage: STRENGTH: 2.5-0.025 MG PER TABLET DAILY DOSE: 4 TIMES DAILY AS NEEDED
     Route: 048
  5. ESCITALOPRAM [Concomitant]
     Dosage: 10 MG
     Route: 048
     Dates: start: 20140519
  6. GABAPENTIN [Concomitant]
     Dosage: 900 MG
     Route: 048
  7. INSULIN ASPART [Concomitant]
     Dosage: FORMULATION: INJECTION,STRENGTH: 100UNIT/ ML 5 UNITS
     Route: 058
  8. INSULIN GLARGINE [Concomitant]
     Dosage: FORMULATION: INJECTION, DOSE PER APPLICATION AND DAILY DOSE:100 UNIT/ML 30 UNITS
     Route: 058
  9. IPRATROPIUM-ALBUTEROL [Concomitant]
     Dosage: FORMULATION: INHALER,DOSE PER APPLICATION: 18-103 MCG/ACT 2 PUFF
     Route: 055
  10. GEMFIBROZIL [Concomitant]
     Dosage: 1200 MG
     Route: 048
  11. OMEPRAZOLE [Concomitant]
     Dosage: 40 MG
     Route: 048
  12. PRAVASTATIN [Concomitant]
     Route: 065
     Dates: start: 20140528
  13. RITONAVIR [Concomitant]
     Dosage: 200 MG
     Route: 048
  14. SUCRALFATE [Concomitant]
     Dosage: 4 G
     Route: 048

REACTIONS (1)
  - Heart rate increased [Recovered/Resolved]
